FAERS Safety Report 16932100 (Version 2)
Quarter: 2019Q4

REPORT INFORMATION
  Report Type: Spontaneous
  Country: US (occurrence: US)
  Receive Date: 20191017
  Receipt Date: 20191223
  Transmission Date: 20200122
  Serious: Yes (Life-Threatening, Hospitalization)
  Sender: FDA-Public Use
  Company Number: US-SHIRE-US201933356

PATIENT
  Age: 59 Year
  Sex: Female

DRUGS (1)
  1. NATPARA (PARATHYROID HORMONE) [Suspect]
     Active Substance: PARATHYROID HORMONE
     Indication: HYPOPARATHYROIDISM
     Dosage: 75 MICROGRAM
     Route: 065
     Dates: start: 2016, end: 201909

REACTIONS (4)
  - Product distribution issue [Unknown]
  - Blood calcium decreased [Unknown]
  - Recalled product [Unknown]
  - Product dose omission [Unknown]

NARRATIVE: CASE EVENT DATE: 201909
